FAERS Safety Report 7466984-2 (Version None)
Quarter: 2011Q2

REPORT INFORMATION
  Report Type: 
  Country: None (occurrence: None)
  Receive Date: 20110509
  Receipt Date: 20110324
  Transmission Date: 20111010
  Serious: Yes (Hospitalization, Other)
  Sender: FDA-Public Use
  Company Number: US-BAYER-201024234NA

PATIENT
  Age: 46 Year
  Sex: Female
  Weight: 122.45 kg

DRUGS (4)
  1. DARVOCET [Concomitant]
  2. SYNTHROID [Concomitant]
     Dosage: 2 MG, QD
     Route: 048
  3. NORVASC [Concomitant]
     Dosage: 5 MG, QD
     Route: 048
  4. YASMIN [Suspect]
     Indication: ORAL CONTRACEPTION

REACTIONS (4)
  - CEREBROVASCULAR ACCIDENT [None]
  - HYPOAESTHESIA FACIAL [None]
  - TRANSIENT ISCHAEMIC ATTACK [None]
  - APHASIA [None]
